FAERS Safety Report 8191843-X (Version None)
Quarter: 2012Q1

REPORT INFORMATION
  Report Type: 
  Country: None (occurrence: None)
  Receive Date: 20120307
  Receipt Date: 20120228
  Transmission Date: 20120608
  Serious: Yes (Other)
  Sender: FDA-Public Use
  Company Number: PHHY2012BR018283

PATIENT
  Sex: Male

DRUGS (1)
  1. TEGRETOL-XR [Suspect]
     Indication: CONVULSION

REACTIONS (4)
  - FALL [None]
  - CONVULSION [None]
  - COMPARTMENT SYNDROME [None]
  - MUSCULOSKELETAL DISORDER [None]
